FAERS Safety Report 13534130 (Version 2)
Quarter: 2017Q3

REPORT INFORMATION
  Report Type: Spontaneous
  Country: US (occurrence: US)
  Receive Date: 20170510
  Receipt Date: 20170712
  Transmission Date: 20171127
  Serious: No
  Sender: FDA-Public Use
  Company Number: US-009507513-1704USA013558

PATIENT
  Age: 17 Year
  Sex: Female
  Weight: 49.43 kg

DRUGS (2)
  1. NEXPLANON [Suspect]
     Active Substance: ETONOGESTREL
     Indication: CONTRACEPTION
     Dosage: 1 DF EVERY 3 YEARS, INSERTED IN THE LEFT ARM
     Route: 059
     Dates: start: 20170414, end: 20170414
  2. NEXPLANON [Suspect]
     Active Substance: ETONOGESTREL
     Dosage: 1 DF, INSERTED IN THE RIGHT ARM
     Route: 059
     Dates: start: 20170414

REACTIONS (5)
  - Complication of device insertion [Recovered/Resolved]
  - Contusion [Unknown]
  - Pain in extremity [Unknown]
  - Device deployment issue [Unknown]
  - Product quality issue [Unknown]

NARRATIVE: CASE EVENT DATE: 20170414
